FAERS Safety Report 13687547 (Version 1)
Quarter: 2017Q2

REPORT INFORMATION
  Report Type: Report from Study
  Country: None (occurrence: GB)
  Receive Date: 20170624
  Receipt Date: 20170624
  Transmission Date: 20170830
  Serious: Yes (Hospitalization)
  Sender: FDA-Public Use
  Company Number: GB-ABBVIE-17P-167-2018829-00

PATIENT
  Age: 43 Year
  Sex: Female

DRUGS (1)
  1. HUMIRA [Suspect]
     Active Substance: ADALIMUMAB
     Indication: PSORIATIC ARTHROPATHY
     Route: 058
     Dates: start: 20161129, end: 201612

REACTIONS (4)
  - Salivary hypersecretion [Unknown]
  - Vomiting [Unknown]
  - Pharyngeal oedema [Unknown]
  - Swelling face [Unknown]

NARRATIVE: CASE EVENT DATE: 201701
